FAERS Safety Report 13482992 (Version 2)
Quarter: 2017Q3

REPORT INFORMATION
  Report Type: Report from Study
  Country: US (occurrence: US)
  Receive Date: 20170424
  Receipt Date: 20170728
  Transmission Date: 20171127
  Serious: No
  Sender: FDA-Public Use
  Company Number: US-AMGEN-USASL2017050870

PATIENT
  Age: 78 Year
  Sex: Female

DRUGS (1)
  1. REPATHA [Suspect]
     Active Substance: EVOLOCUMAB
     Indication: HYPERCHOLESTEROLAEMIA
     Dosage: 420 MG, QMO
     Route: 065
     Dates: start: 201702

REACTIONS (10)
  - Bowel movement irregularity [Unknown]
  - Malaise [Unknown]
  - Hot flush [Unknown]
  - Dizziness [Unknown]
  - Gastrointestinal pain [Unknown]
  - Sleep disorder [Unknown]
  - Asthenia [Unknown]
  - Tremor [Unknown]
  - Flatulence [Unknown]
  - Contusion [Unknown]

NARRATIVE: CASE EVENT DATE: 2017
